FAERS Safety Report 5859487-X (Version None)
Quarter: 2008Q3

REPORT INFORMATION
  Report Type: 
  Country: None (occurrence: None)
  Receive Date: 20080827
  Receipt Date: 20080821
  Transmission Date: 20090109
  Serious: Yes (Other)
  Sender: FDA-Public Use
  Company Number: A0718450A

PATIENT
  Age: 58 Year
  Sex: Male
  Weight: 104.5 kg

DRUGS (14)
  1. AVANDIA [Suspect]
     Indication: DIABETES MELLITUS
     Dosage: 8MG PER DAY
     Route: 048
     Dates: start: 20000301, end: 20070401
  2. REZULIN [Concomitant]
     Dates: start: 19990501, end: 20000101
  3. INSULIN [Concomitant]
     Dates: start: 19990501, end: 20070901
  4. ATENOLOL [Concomitant]
     Dates: start: 20000701, end: 20010101
  5. COREG [Concomitant]
     Dates: start: 20010701
  6. GEMFIBROZIL [Concomitant]
  7. TRICOR [Concomitant]
  8. NIASPAN [Concomitant]
  9. OMACOR [Concomitant]
  10. ACCUPRIL [Concomitant]
  11. ALTACE [Concomitant]
  12. FOLIC ACID [Concomitant]
  13. PLAVIX [Concomitant]
  14. ASPIRIN [Concomitant]

REACTIONS (1)
  - MYOCARDIAL INFARCTION [None]
